FAERS Safety Report 6274352-4 (Version None)
Quarter: 2009Q3

REPORT INFORMATION
  Report Type: 
  Country: None (occurrence: None)
  Receive Date: 20090716
  Receipt Date: 20090703
  Transmission Date: 20100115
  Serious: Yes (Death)
  Sender: FDA-Public Use
  Company Number: FABR-1000892

PATIENT
  Age: 70 Year
  Weight: 57 kg

DRUGS (4)
  1. FABRAZYME [Suspect]
     Indication: DRUG USE FOR UNKNOWN INDICATION
  2. FABRAZYME [Suspect]
  3. FABRAZYME [Suspect]
  4. FABRAZYME [Suspect]

REACTIONS (1)
  - COMPLETED SUICIDE [None]
